FAERS Safety Report 25917794 (Version 2)
Quarter: 2025Q4

REPORT INFORMATION
  Report Type: Spontaneous
  Country: US (occurrence: US)
  Receive Date: 20251014
  Receipt Date: 20251016
  Transmission Date: 20260118
  Serious: Yes (Other)
  Sender: Kenvue
  Company Number: US-KENVUE-20250906680

PATIENT
  Age: 62 Year
  Sex: Female

DRUGS (1)
  1. AVEENO POSITIVELY RADIANT DAILY MOISTURIZER SPF30 [Suspect]
     Active Substance: AVOBENZONE\HOMOSALATE\OCTISALATE\OCTOCRYLENE
     Indication: Product used for unknown indication
     Dosage: 1PUMP DAILY, ONLY USED FOR A FEW MONTHS, 2 NEW + 1 A MONTH OLD
     Route: 061
     Dates: start: 1990, end: 2025

REACTIONS (4)
  - Lichen planopilaris [Recovering/Resolving]
  - Eye pain [Unknown]
  - Lacrimation increased [Unknown]
  - Product physical consistency issue [Unknown]

NARRATIVE: CASE EVENT DATE: 20250101
